FAERS Safety Report 17749323 (Version 3)
Quarter: 2020Q2

REPORT INFORMATION
  Report Type: Spontaneous
  Country: CH (occurrence: NZ)
  Receive Date: 20200505
  Receipt Date: 20200615
  Transmission Date: 20200714
  Serious: Yes (Other)
  Sender: FDA-Public Use
  Company Number: CH-AMGEN-CHESP2020069882

PATIENT
  Sex: Female

DRUGS (1)
  1. NEULASTA [Suspect]
     Active Substance: PEGFILGRASTIM
     Indication: EXPOSURE DURING PREGNANCY
     Dosage: UNK
     Route: 050

REACTIONS (2)
  - Abortion spontaneous [Recovered/Resolved]
  - Paternal exposure during pregnancy [Recovered/Resolved]
